FAERS Safety Report 6819126-8 (Version None)
Quarter: 2010Q3

REPORT INFORMATION
  Report Type: 
  Country: None (occurrence: None)
  Receive Date: 20100707
  Receipt Date: 20100628
  Transmission Date: 20110219
  Serious: Yes (Other)
  Sender: FDA-Public Use
  Company Number: JP-JNJFOC-20100603950

PATIENT
  Age: 23 Year
  Sex: Female

DRUGS (4)
  1. RISPERDAL [Suspect]
     Indication: SELF INJURIOUS BEHAVIOUR
     Route: 048
  2. RISPERDAL [Suspect]
     Route: 048
  3. HALOPERIDOL [Suspect]
     Indication: ABNORMAL BEHAVIOUR
     Route: 065
  4. PIMOZIDE [Concomitant]
     Indication: ABNORMAL BEHAVIOUR
     Route: 065

REACTIONS (1)
  - URINARY INCONTINENCE [None]
